FAERS Safety Report 10020363 (Version 1)
Quarter: 2014Q1

REPORT INFORMATION
  Report Type: Spontaneous
  Country: US (occurrence: US)
  Receive Date: 20140319
  Receipt Date: 20140319
  Transmission Date: 20141002
  Serious: No
  Sender: FDA-Public Use
  Company Number: US-BIOGENIDEC-2014BI022300

PATIENT
  Age: 71 Year
  Sex: Female

DRUGS (11)
  1. TECFIDERA [Suspect]
     Indication: MULTIPLE SCLEROSIS
     Route: 048
     Dates: start: 201311
  2. TECFIDERA [Suspect]
     Indication: MULTIPLE SCLEROSIS
     Route: 048
  3. PROCARDIA [Concomitant]
  4. VICODIN HP [Concomitant]
  5. TRAMADOL HCL [Concomitant]
  6. SIMVASTATIN [Concomitant]
  7. LISINOPRIL-HCTZ [Concomitant]
  8. BACLOFEN [Concomitant]
  9. AMITRIPTYLINE HCL [Concomitant]
  10. OXYBUTYNIN [Concomitant]
  11. VITAMIN D [Concomitant]

REACTIONS (1)
  - Onychoclasis [Recovered/Resolved]
